FAERS Safety Report 6134247-3 (Version None)
Quarter: 2009Q1

REPORT INFORMATION
  Report Type: 
  Country: None (occurrence: None)
  Receive Date: 20090325
  Receipt Date: 20090309
  Transmission Date: 20090719
  Serious: Yes (Death, Hospitalization)
  Sender: FDA-Public Use
  Company Number: 8044174

PATIENT
  Age: 31 Year
  Sex: Male

DRUGS (8)
  1. PREDNISOLONE [Suspect]
     Dosage: 5 MG 1/D
     Dates: start: 20020101
  2. MERCAPTOPURINE [Suspect]
     Indication: CROHN'S DISEASE
     Dosage: NI
  3. AZATHIOPRINE [Suspect]
     Dosage: 100 MG 1/D 150 MG 1/D
     Dates: end: 20060901
  4. AZATHIOPRINE [Suspect]
     Dosage: 100 MG 1/D 150 MG 1/D
     Dates: start: 20010601
  5. AZATHIOPRINE [Suspect]
     Dosage: 100 MG 1/D 150 MG 1/D
     Dates: start: 20020101
  6. REMICADE [Suspect]
     Indication: CROHN'S DISEASE
     Dosage: ONCE IV
     Route: 042
     Dates: end: 20050929
  7. METRONIDAZOLE /00012503/ [Concomitant]
  8. VITAMIN B12 /00056201/ [Concomitant]

REACTIONS (18)
  - ANAL FISTULA [None]
  - C-REACTIVE PROTEIN INCREASED [None]
  - CROHN'S DISEASE [None]
  - DIABETIC KETOACIDOSIS [None]
  - DISEASE RECURRENCE [None]
  - HEPATOSPLENIC T-CELL LYMPHOMA [None]
  - ILEAL STENOSIS [None]
  - INFLUENZA LIKE ILLNESS [None]
  - LETHARGY [None]
  - LEUKOPENIA [None]
  - NEUTROPENIA [None]
  - PELVIC PAIN [None]
  - PLATELET COUNT DECREASED [None]
  - PYREXIA [None]
  - RECTAL ABSCESS [None]
  - RECTAL DISCHARGE [None]
  - SEPSIS [None]
  - SPLENOMEGALY [None]
